FAERS Safety Report 17780435 (Version 1)
Quarter: 2020Q2

REPORT INFORMATION
  Report Type: Spontaneous
  Country: US (occurrence: US)
  Receive Date: 20200514
  Receipt Date: 20200514
  Transmission Date: 20200714
  Serious: Yes (Hospitalization)
  Sender: FDA-Public Use
  Company Number: US-ROCHE-2579837

PATIENT
  Age: 57 Year
  Sex: Male
  Weight: 104.42 kg

DRUGS (2)
  1. ESBRIET [Suspect]
     Active Substance: PIRFENIDONE
     Indication: IDIOPATHIC PULMONARY FIBROSIS
     Route: 048
     Dates: start: 20190713
  2. ESBRIET [Suspect]
     Active Substance: PIRFENIDONE
     Route: 048
     Dates: start: 201906, end: 202004

REACTIONS (8)
  - Skin exfoliation [Recovered/Resolved]
  - Periorbital swelling [Not Recovered/Not Resolved]
  - Skin warm [Not Recovered/Not Resolved]
  - Sunburn [Recovering/Resolving]
  - Erythema [Recovered/Resolved]
  - Hyperaesthesia [Recovered/Resolved]
  - Herpes zoster [Recovered/Resolved]
  - Acute respiratory distress syndrome [Not Recovered/Not Resolved]

NARRATIVE: CASE EVENT DATE: 20200403
